FAERS Safety Report 4649410-8 (Version None)
Quarter: 2005Q2

REPORT INFORMATION
  Report Type: 
  Country: None (occurrence: None)
  Receive Date: 20050428
  Receipt Date: 20050428
  Transmission Date: 20051028
  Serious: Yes (Other)
  Sender: FDA-Public Use
  Company Number: None

PATIENT
  Age: 54 Year
  Sex: Male
  Weight: 115.1 kg

DRUGS (2)
  1. MORPHINE SUL TAB [Suspect]
     Indication: BACK PAIN
     Dosage: 1 TAB Q 12 H PRN BACK PAIN
     Dates: start: 20040429, end: 20040623
  2. MORPHINE SUL HYT [Suspect]
     Dosage: 1 TAB Q 4 - 6 H PRN

REACTIONS (3)
  - HALLUCINATION [None]
  - NAUSEA [None]
  - TREATMENT NONCOMPLIANCE [None]
